FAERS Safety Report 6336528-7 (Version None)
Quarter: 2009Q3

REPORT INFORMATION
  Report Type: 
  Country: None (occurrence: None)
  Receive Date: 20090831
  Receipt Date: 20090831
  Transmission Date: 20100115
  Serious: Yes (Hospitalization)
  Sender: FDA-Public Use
  Company Number: None

PATIENT
  Age: 62 Year
  Sex: Male

DRUGS (1)
  1. NYSTATIN [Suspect]
     Indication: ORAL CANDIDIASIS
     Dosage: 500,000 UNITS TID PO
     Route: 048
     Dates: start: 20090818, end: 20090818

REACTIONS (1)
  - ANGIOEDEMA [None]
